FAERS Safety Report 12778802 (Version 1)
Quarter: 2016Q3

REPORT INFORMATION
  Report Type: Spontaneous
  Country: SK (occurrence: SK)
  Receive Date: 20160926
  Receipt Date: 20160926
  Transmission Date: 20161109
  Serious: Yes (Other)
  Sender: FDA-Public Use
  Company Number: SK-ROCHE-1834241

PATIENT

DRUGS (1)
  1. ACTILYSE [Suspect]
     Active Substance: ALTEPLASE
     Indication: CEREBROVASCULAR ACCIDENT
     Route: 051
     Dates: start: 2006, end: 2016

REACTIONS (3)
  - Haemorrhage [Unknown]
  - NIH stroke scale score increased [Recovered/Resolved]
  - Carotid artery occlusion [Unknown]
